FAERS Safety Report 4904141-1 (Version None)
Quarter: 2006Q1

REPORT INFORMATION
  Report Type: 
  Country: None (occurrence: None)
  Receive Date: 20060208
  Receipt Date: 20050615
  Transmission Date: 20060701
  Serious: No
  Sender: FDA-Public Use
  Company Number: US-GLAXOSMITHKLINE-A0562813A

PATIENT
  Age: 47 Year
  Sex: Female

DRUGS (20)
  1. PAXIL [Suspect]
     Indication: DEPRESSION
     Dosage: 40MG PER DAY
     Route: 048
     Dates: start: 20050401
  2. PREVACID [Concomitant]
  3. AVANDIA [Concomitant]
  4. GLIPIZIDE [Concomitant]
  5. BETAPACE [Concomitant]
  6. COUMADIN [Concomitant]
  7. WELLBUTRIN XL [Concomitant]
  8. VYTORIN [Concomitant]
  9. NEURONTIN [Concomitant]
  10. XANAX [Concomitant]
  11. ASPIRIN [Concomitant]
  12. ZYRTEC [Concomitant]
  13. SINGULAIR [Concomitant]
  14. FLONASE [Concomitant]
  15. MULTI-VITAMIN [Concomitant]
  16. VITAMIN E [Concomitant]
  17. NORFLEX [Concomitant]
  18. ESGIC-PLUS [Concomitant]
  19. LORTAB [Concomitant]
  20. ALBUTEROL [Concomitant]

REACTIONS (1)
  - DEPRESSION [None]
